FAERS Safety Report 5447097-8 (Version None)
Quarter: 2007Q3

REPORT INFORMATION
  Report Type: 
  Country: None (occurrence: None)
  Receive Date: 20070809
  Receipt Date: 20070430
  Transmission Date: 20080115
  Serious: No
  Sender: FDA-Public Use
  Company Number: WAES 0705USA00033

PATIENT
  Age: 32 Year
  Sex: Male

DRUGS (1)
  1. ZOLINZA [Suspect]
     Indication: BRAIN NEOPLASM MALIGNANT
     Dosage: 400 MG/DAILY/PO
     Route: 048
     Dates: start: 20070302

REACTIONS (2)
  - BLOOD PHOSPHORUS DECREASED [None]
  - INTENTIONAL DRUG MISUSE [None]
